FAERS Safety Report 22241065 (Version 1)
Quarter: 2023Q2

REPORT INFORMATION
  Report Type: Spontaneous
  Country: US (occurrence: US)
  Receive Date: 20230421
  Receipt Date: 20230421
  Transmission Date: 20230722
  Serious: Yes (Other)
  Sender: FDA-Public Use
  Company Number: US-FreseniusKabi-FK202305185

PATIENT
  Age: 68 Year
  Sex: Female

DRUGS (11)
  1. CYTARABINE [Suspect]
     Active Substance: CYTARABINE
     Indication: Acute myeloid leukaemia
     Dosage: 170 MG (100 MG/M2) IV DAILY FOR 7 DAYS
     Route: 042
  2. CYTARABINE [Suspect]
     Active Substance: CYTARABINE
     Dosage: 50 MG ON DAY 28 OF CHEMOTHERAPY
     Route: 037
  3. CYTARABINE [Suspect]
     Active Substance: CYTARABINE
     Dosage: (6 DOSES OF CYTAABINE 1,000 MG/M2 EVERY 12 H)
     Route: 065
  4. IDARUBICIN [Suspect]
     Active Substance: IDARUBICIN
     Indication: Acute myeloid leukaemia
     Dosage: 20 MG (12 MG/M2) IV DAILY FOR 3 DAYS
  5. SOTROVIMAB [Concomitant]
     Active Substance: SOTROVIMAB
     Indication: COVID-19
  6. mRNA-1273 vaccine [Concomitant]
     Indication: COVID-19
  7. DECITABINE [Concomitant]
     Active Substance: DECITABINE
     Indication: Acute myeloid leukaemia
  8. VENETOCLAX [Concomitant]
     Active Substance: VENETOCLAX
     Indication: Acute myeloid leukaemia
  9. REMDESIVIR [Concomitant]
     Active Substance: REMDESIVIR
     Indication: COVID-19
  10. tixagevimab% [Concomitant]
     Indication: COVID-19 prophylaxis
     Route: 030
  11. TIXAGEVIMAB [Concomitant]
     Active Substance: TIXAGEVIMAB
     Indication: COVID-19 prophylaxis
     Route: 030

REACTIONS (2)
  - Febrile neutropenia [Recovered/Resolved]
  - Pericarditis [Recovering/Resolving]
